FAERS Safety Report 10559526 (Version 2)
Quarter: 2014Q4

REPORT INFORMATION
  Report Type: Spontaneous
  Country: GB (occurrence: GB)
  Receive Date: 20141103
  Receipt Date: 20141105
  Transmission Date: 20150529
  Serious: Yes (Hospitalization)
  Sender: FDA-Public Use
  Company Number: PHFR2014GB007397

PATIENT
  Age: 65 Year
  Sex: Male

DRUGS (1)
  1. CLOZARIL [Suspect]
     Active Substance: CLOZAPINE
     Indication: SCHIZOPHRENIA
     Dosage: 400 MG (100 TO 400 MG)
     Route: 048
     Dates: start: 20071119, end: 20141024

REACTIONS (4)
  - Antipsychotic drug level above therapeutic [Unknown]
  - Somnolence [Unknown]
  - Liver abscess [Unknown]
  - Cholestasis [Unknown]

NARRATIVE: CASE EVENT DATE: 20141018
